FAERS Safety Report 14416379 (Version 1)
Quarter: 2018Q1

REPORT INFORMATION
  Report Type: Spontaneous
  Country: US (occurrence: US)
  Receive Date: 20180122
  Receipt Date: 20180122
  Transmission Date: 20180509
  Serious: Yes (Hospitalization, Other)
  Sender: FDA-Public Use
  Company Number: US-BEH-2018086861

PATIENT
  Age: 79 Year
  Sex: Female
  Weight: 61.22 kg

DRUGS (38)
  1. HIZENTRA [Suspect]
     Active Substance: HUMAN IMMUNOGLOBULIN G
     Indication: IMMUNODEFICIENCY COMMON VARIABLE
     Dosage: 8 G, QW
     Route: 058
     Dates: start: 20110223
  2. HIZENTRA [Suspect]
     Active Substance: HUMAN IMMUNOGLOBULIN G
     Dosage: UNK
     Route: 058
  3. OXYCODONE AND ACETAMINOPHEN [Concomitant]
     Active Substance: ACETAMINOPHEN\OXYCODONE HYDROCHLORIDE
  4. MIRAPEX [Concomitant]
     Active Substance: PRAMIPEXOLE DIHYDROCHLORIDE
  5. VITAMIN B12 [Concomitant]
     Active Substance: CYANOCOBALAMIN
  6. COMBIVENT [Concomitant]
     Active Substance: ALBUTEROL SULFATE\IPRATROPIUM BROMIDE
  7. ACETAMINOPHEN. [Concomitant]
     Active Substance: ACETAMINOPHEN
  8. ULTRAM [Concomitant]
     Active Substance: TRAMADOL HYDROCHLORIDE
  9. EXCEDRIN MIGRAINE [Concomitant]
     Active Substance: ACETAMINOPHEN\ASPIRIN\CAFFEINE
  10. MAXZIDE [Concomitant]
     Active Substance: HYDROCHLOROTHIAZIDE\TRIAMTERENE
  11. MECLIZINE [Concomitant]
     Active Substance: MECLIZINE HYDROCHLORIDE
  12. ALLEGRA [Concomitant]
     Active Substance: FEXOFENADINE HYDROCHLORIDE
  13. EPINEPHRINE. [Concomitant]
     Active Substance: EPINEPHRINE
  14. BACTRIM [Concomitant]
     Active Substance: SULFAMETHOXAZOLE\TRIMETHOPRIM
  15. ZANTAC [Concomitant]
     Active Substance: RANITIDINE HYDROCHLORIDE
  16. FLUTICASONE. [Concomitant]
     Active Substance: FLUTICASONE
  17. POTASSIUM [Concomitant]
     Active Substance: POTASSIUM
  18. ZOCOR [Concomitant]
     Active Substance: SIMVASTATIN
  19. MOBIC [Concomitant]
     Active Substance: MELOXICAM
  20. SINGULAIR [Concomitant]
     Active Substance: MONTELUKAST SODIUM
  21. LEVALBUTEROL. [Concomitant]
     Active Substance: LEVALBUTEROL
  22. SYMBICORT [Concomitant]
     Active Substance: BUDESONIDE\FORMOTEROL FUMARATE DIHYDRATE
  23. VITAMIN B-6 [Concomitant]
     Active Substance: PYRIDOXINE
  24. HYDROCODONE/HOMATROPINE [Concomitant]
     Active Substance: HOMATROPINE METHYLBROMIDE\HYDROCODONE BITARTRATE
  25. LASIX [Concomitant]
     Active Substance: FUROSEMIDE
  26. AMBIEN [Concomitant]
     Active Substance: ZOLPIDEM TARTRATE
  27. VIVELLE-DOT [Concomitant]
     Active Substance: ESTRADIOL
  28. BIOTIN [Concomitant]
     Active Substance: BIOTIN
  29. VITAMIN D3 [Concomitant]
     Active Substance: CHOLECALCIFEROL
  30. DIPHENHYDRAMINE. [Concomitant]
     Active Substance: DIPHENHYDRAMINE
  31. NEXIUM [Concomitant]
     Active Substance: ESOMEPRAZOLE MAGNESIUM
  32. LMX                                /00033401/ [Concomitant]
  33. TOPAMAX [Concomitant]
     Active Substance: TOPIRAMATE
  34. CALCIUM + D DUETTO [Concomitant]
  35. ELAVIL [Concomitant]
     Active Substance: AMITRIPTYLINE HYDROCHLORIDE
  36. IMITREX [Concomitant]
     Active Substance: SUMATRIPTAN SUCCINATE
  37. ALENDRONATE [Concomitant]
     Active Substance: ALENDRONATE SODIUM
  38. METHOCARBAMOL. [Concomitant]
     Active Substance: METHOCARBAMOL

REACTIONS (2)
  - Pneumonia [Unknown]
  - Nerve injury [Unknown]

NARRATIVE: CASE EVENT DATE: 20171219
